FAERS Safety Report 25797391 (Version 1)
Quarter: 2025Q3

REPORT INFORMATION
  Report Type: Spontaneous
  Country: US (occurrence: None)
  Receive Date: 20250912
  Receipt Date: 20250912
  Transmission Date: 20251020
  Serious: Yes (Death)
  Sender: FDA-CTU
  Company Number: None

PATIENT
  Age: 83 Year
  Sex: Male

DRUGS (1)
  1. AMPHOTERICIN B [Suspect]
     Active Substance: AMPHOTERICIN B
     Route: 042

REACTIONS (7)
  - Accidental overdose [None]
  - Product label issue [None]
  - Product preparation error [None]
  - Drug monitoring procedure not performed [None]
  - Product sterility issue [None]
  - Infusion related reaction [None]
  - General physical health deterioration [None]

NARRATIVE: CASE EVENT DATE: 20250907
